FAERS Safety Report 22138671 (Version 1)
Quarter: 2023Q1

REPORT INFORMATION
  Report Type: Spontaneous
  Country: US (occurrence: US)
  Receive Date: 20230326
  Receipt Date: 20230326
  Transmission Date: 20230418
  Serious: Yes (Other)
  Sender: FDA-Public Use
  Company Number: US-TAKEDA-2023TUS027756

PATIENT
  Sex: Female
  Weight: 61 kg

DRUGS (4)
  1. VYVANSE [Suspect]
     Active Substance: LISDEXAMFETAMINE DIMESYLATE
     Indication: Tension
     Route: 065
  2. VYVANSE [Suspect]
     Active Substance: LISDEXAMFETAMINE DIMESYLATE
     Indication: Distractibility
  3. METAXALONE [Concomitant]
     Active Substance: METAXALONE
  4. DULOXETINE [Concomitant]
     Active Substance: DULOXETINE
     Dosage: 20 MILLIGRAM
     Route: 065

REACTIONS (7)
  - Tunnel vision [Unknown]
  - Lip injury [Unknown]
  - Dry mouth [Unknown]
  - Headache [Unknown]
  - Product physical issue [Unknown]
  - Manufacturing equipment issue [Unknown]
  - Product use in unapproved indication [Unknown]
